FAERS Safety Report 18463946 (Version 1)
Quarter: 2020Q4

REPORT INFORMATION
  Report Type: Spontaneous
  Country: CN (occurrence: CN)
  Receive Date: 20201104
  Receipt Date: 20201104
  Transmission Date: 20210114
  Serious: Yes (Hospitalization)
  Sender: FDA-Public Use
  Company Number: CN-B.I. PHARMACEUTICALS,INC./RIDGEFIELD-2020-BI-058363

PATIENT
  Age: 100 Year
  Sex: Female
  Weight: 38 kg

DRUGS (1)
  1. PRADAXA [Suspect]
     Active Substance: DABIGATRAN ETEXILATE MESYLATE
     Indication: CARDIAC FAILURE
     Route: 048
     Dates: start: 20191102, end: 20200928

REACTIONS (3)
  - Fatigue [Unknown]
  - Faeces discoloured [Unknown]
  - Anaemia [Unknown]

NARRATIVE: CASE EVENT DATE: 20200926
